FAERS Safety Report 6173322-4 (Version None)
Quarter: 2009Q2

REPORT INFORMATION
  Report Type: 
  Country: None (occurrence: None)
  Receive Date: 20090430
  Receipt Date: 20090421
  Transmission Date: 20091009
  Serious: Yes (Other)
  Sender: FDA-Public Use
  Company Number: US-JNJCH-2009011144

PATIENT
  Age: 69 Year
  Sex: Female
  Weight: 63.5 kg

DRUGS (5)
  1. NASALCROM [Suspect]
     Indication: HYPERSENSITIVITY
     Dosage: TEXT:1 PUMP ON EACH SIDE OF THE NOSE ONCE
     Route: 045
     Dates: start: 20090401, end: 20090401
  2. AMLODIPINE [Concomitant]
     Indication: HYPERTENSION
     Route: 048
  3. TRIAMTERENE [Concomitant]
     Indication: HYPERTENSION
     Dosage: TEXT:37-5-25 ONCE A DAY
     Route: 048
  4. NEXIUM [Concomitant]
     Indication: GASTROOESOPHAGEAL REFLUX DISEASE
     Dosage: TEXT:UNSPECIFIED
     Route: 048
  5. NIASPAN [Concomitant]
     Indication: BLOOD CHOLESTEROL
     Route: 048

REACTIONS (2)
  - ANAPHYLACTIC REACTION [None]
  - DRUG INTERACTION [None]
